FAERS Safety Report 16462431 (Version 2)
Quarter: 2019Q2

REPORT INFORMATION
  Report Type: Spontaneous
  Country: PL (occurrence: PL)
  Receive Date: 20190621
  Receipt Date: 20190627
  Transmission Date: 20190711
  Serious: Yes (Other)
  Sender: FDA-Public Use
  Company Number: PL-PFIZER INC-2019240377

PATIENT
  Age: 41 Year
  Sex: Female

DRUGS (5)
  1. EPANUTIN [Suspect]
     Active Substance: PHENYTOIN SODIUM
     Dosage: 250/50 INFUSION OF 2 ML/1H/24H/DAY
     Route: 041
  2. EPANUTIN [Suspect]
     Active Substance: PHENYTOIN SODIUM
     Dosage: UNK
     Route: 040
  3. PHENYTOIN. [Suspect]
     Active Substance: PHENYTOIN
     Dosage: 150 MG, UNK
     Route: 048
  4. PHENYTOIN. [Suspect]
     Active Substance: PHENYTOIN
     Dosage: UNK
  5. MERONEM [Suspect]
     Active Substance: MEROPENEM
     Dosage: UNK
     Route: 042

REACTIONS (6)
  - Erythema [Unknown]
  - Deep vein thrombosis [Unknown]
  - Peripheral swelling [Recovered/Resolved]
  - Product deposit [Recovered/Resolved]
  - Contusion [Recovered/Resolved]
  - Poor quality product administered [Recovered/Resolved]
